FAERS Safety Report 7305434-3 (Version None)
Quarter: 2011Q1

REPORT INFORMATION
  Report Type: 
  Country: None (occurrence: None)
  Receive Date: 20110222
  Receipt Date: 20110216
  Transmission Date: 20110831
  Serious: Yes (Other)
  Sender: FDA-Public Use
  Company Number: CA-PFIZER INC-2011035423

PATIENT
  Sex: Female

DRUGS (2)
  1. CELEBREX [Suspect]
     Dosage: 400 MG, 1X/DAY
  2. CELEBREX [Suspect]
     Dosage: UNK

REACTIONS (2)
  - JOINT ARTHROPLASTY [None]
  - GLOMERULAR FILTRATION RATE INCREASED [None]
